FAERS Safety Report 25757389 (Version 1)
Quarter: 2025Q3

REPORT INFORMATION
  Report Type: Spontaneous
  Country: US (occurrence: US)
  Receive Date: 20250903
  Receipt Date: 20250903
  Transmission Date: 20251021
  Serious: No
  Sender: CSL BEHRING
  Company Number: US-BEH-2025217494

PATIENT
  Age: 63 Year
  Sex: Female

DRUGS (2)
  1. HIZENTRA [Suspect]
     Active Substance: HUMAN IMMUNOGLOBULIN G
     Indication: Immunoglobulins
     Dosage: 12 G, QW
     Route: 058
     Dates: start: 202412
  2. EPINEPHRINE [Concomitant]
     Active Substance: EPINEPHRINE

REACTIONS (4)
  - Illness [Unknown]
  - Weight decreased [Unknown]
  - Decreased appetite [Unknown]
  - Malaise [Unknown]

NARRATIVE: CASE EVENT DATE: 20250829
